FAERS Safety Report 6937270-1 (Version None)
Quarter: 2010Q3

REPORT INFORMATION
  Report Type: 
  Country: None (occurrence: None)
  Receive Date: 20100823
  Receipt Date: 20100813
  Transmission Date: 20110219
  Serious: Yes (Hospitalization, Disabling)
  Sender: FDA-Public Use
  Company Number: A0877054A

PATIENT
  Age: 52 Year
  Sex: Female

DRUGS (1)
  1. ROSIGLITAZONE MALEATE [Suspect]
     Route: 048

REACTIONS (10)
  - BLINDNESS [None]
  - CARDIAC DISORDER [None]
  - CARDIAC FAILURE CONGESTIVE [None]
  - CEREBROVASCULAR ACCIDENT [None]
  - DEFORMITY [None]
  - HYPERTENSION [None]
  - MYOCARDIAL INFARCTION [None]
  - PHYSICAL DISABILITY [None]
  - RENAL DISORDER [None]
  - RENAL FAILURE [None]
